FAERS Safety Report 17929341 (Version 1)
Quarter: 2020Q2

REPORT INFORMATION
  Report Type: Spontaneous
  Country: US (occurrence: US)
  Receive Date: 20200623
  Receipt Date: 20200623
  Transmission Date: 20200714
  Serious: No
  Sender: FDA-Public Use
  Company Number: NVSC2020US175848

PATIENT
  Age: 73 Year
  Sex: Female

DRUGS (3)
  1. VOLTAREN EMULGEL [Suspect]
     Active Substance: DICLOFENAC DIETHYLAMINE
     Indication: ARTHRALGIA
  2. VOLTAREN EMULGEL [Suspect]
     Active Substance: DICLOFENAC DIETHYLAMINE
     Indication: BACK PAIN
  3. VOLTAREN EMULGEL [Suspect]
     Active Substance: DICLOFENAC DIETHYLAMINE
     Indication: ARTHRITIS
     Dosage: 4 G, BID
     Route: 065

REACTIONS (5)
  - Product use issue [Recovered/Resolved]
  - Product use in unapproved indication [Unknown]
  - Underdose [Unknown]
  - Drug effective for unapproved indication [Unknown]
  - Off label use [Unknown]
